FAERS Safety Report 16815180 (Version 1)
Quarter: 2020Q3

REPORT INFORMATION
  Report Type: Report from Study
  Country: NL (occurrence: NL)
  Receive Date: 20190917
  Receipt Date: 20190917
  Transmission Date: 20201105
  Serious: Yes (Other)
  Sender: FDA-Public Use
  Company Number: NL-ROCHE-2412481

PATIENT
  Age: 47 Year
  Sex: Male

DRUGS (17)
  1. POLATUZUMAB VEDOTIN. [Suspect]
     Active Substance: POLATUZUMAB VEDOTIN
     Indication: DIFFUSE LARGE B-CELL LYMPHOMA
     Route: 042
  2. NOVORAPID [Concomitant]
     Active Substance: INSULIN ASPART
     Dosage: 10 IE
     Route: 058
     Dates: start: 2018
  3. ONDANSETRON [Concomitant]
     Active Substance: ONDANSETRON
  4. BENDAMUSTINE [Concomitant]
     Active Substance: BENDAMUSTINE
  5. OXYCODONE [Concomitant]
     Active Substance: OXYCODONE
  6. METFORMIN [Concomitant]
     Active Substance: METFORMIN HYDROCHLORIDE
     Indication: TYPE 2 DIABETES MELLITUS
     Route: 048
     Dates: start: 20190805
  7. CIPROFLOXACINE [CIPROFLOXACIN] [Concomitant]
     Active Substance: CIPROFLOXACIN
     Route: 048
     Dates: start: 20190830
  8. PARACETAMOL [Concomitant]
     Active Substance: ACETAMINOPHEN
  9. POLATUZUMAB VEDOTIN. [Suspect]
     Active Substance: POLATUZUMAB VEDOTIN
     Route: 042
  10. COTRIMOXAZOL [Concomitant]
     Active Substance: SULFAMETHOXAZOLE\TRIMETHOPRIM
     Route: 048
     Dates: start: 20190403
  11. IOMERON [Concomitant]
     Active Substance: IOMEPROL
  12. ESOMEPRAZOLE. [Concomitant]
     Active Substance: ESOMEPRAZOLE MAGNESIUM
     Indication: DYSPEPSIA
     Route: 048
     Dates: start: 20190807
  13. VALACICLOVIR [Concomitant]
     Active Substance: VALACYCLOVIR HYDROCHLORIDE
     Route: 048
     Dates: start: 20190807
  14. FLUCONAZOLE. [Concomitant]
     Active Substance: FLUCONAZOLE
  15. NOVORAPID [Concomitant]
     Active Substance: INSULIN ASPART
     Indication: TYPE 2 DIABETES MELLITUS
     Dosage: 2?6 IE
     Route: 058
     Dates: start: 2018
  16. CLEMASTINE [Concomitant]
     Active Substance: CLEMASTINE
  17. RITUXIMAB. [Concomitant]
     Active Substance: RITUXIMAB
     Route: 041

REACTIONS (3)
  - Dyspnoea [Recovered/Resolved]
  - Abdominal distension [Recovered/Resolved]
  - Neutropenia [Recovered/Resolved]

NARRATIVE: CASE EVENT DATE: 20190804
